FAERS Safety Report 8001432-5 (Version None)
Quarter: 2011Q4

REPORT INFORMATION
  Report Type: 
  Country: None (occurrence: None)
  Receive Date: 20111222
  Receipt Date: 20111214
  Transmission Date: 20120403
  Serious: Yes (Hospitalization)
  Sender: FDA-Public Use
  Company Number: US-US-EMD SERONO, INC.-7091944

PATIENT
  Sex: Female

DRUGS (5)
  1. REBIF [Suspect]
     Indication: MULTIPLE SCLEROSIS
     Route: 058
     Dates: start: 20110603, end: 20110801
  2. FLEXERIL [Concomitant]
     Dates: end: 20111001
  3. REBIF [Suspect]
     Route: 058
     Dates: start: 20111202
  4. BACLOFEN [Concomitant]
  5. LEXAPRO [Concomitant]

REACTIONS (8)
  - MULTIPLE SCLEROSIS RELAPSE [None]
  - INJECTION SITE MASS [None]
  - THROAT TIGHTNESS [None]
  - INJECTION SITE PAIN [None]
  - INJECTION SITE ERYTHEMA [None]
  - DEPRESSION [None]
  - SUICIDAL IDEATION [None]
  - PAIN [None]
